FAERS Safety Report 5509634-4 (Version None)
Quarter: 2007Q4

REPORT INFORMATION
  Report Type: 
  Country: None (occurrence: None)
  Receive Date: 20071108
  Receipt Date: 20071031
  Transmission Date: 20080405
  Serious: Yes (Other)
  Sender: FDA-Public Use
  Company Number: PHBS2007JP18307

PATIENT
  Age: 44 Year
  Sex: Male

DRUGS (1)
  1. ZOMETA [Suspect]
     Indication: METASTASES TO BONE
     Dates: start: 20071030

REACTIONS (2)
  - MUSCULOSKELETAL PAIN [None]
  - RIB FRACTURE [None]
